FAERS Safety Report 5072053-1 (Version None)
Quarter: 2006Q3

REPORT INFORMATION
  Report Type: 
  Country: None (occurrence: None)
  Receive Date: 20060807
  Receipt Date: 20060602
  Transmission Date: 20061208
  Serious: Yes (Hospitalization)
  Sender: FDA-Public Use
  Company Number: JP-AVENTIS-200611717JP

PATIENT
  Age: 60 Year
  Sex: Male

DRUGS (1)
  1. AMARYL [Suspect]
     Route: 048
     Dates: start: 20060501

REACTIONS (2)
  - LEUKAEMIA [None]
  - PANCYTOPENIA [None]
